FAERS Safety Report 19946353 (Version 2)
Quarter: 2023Q1

REPORT INFORMATION
  Report Type: Spontaneous
  Country: DE (occurrence: DE)
  Receive Date: 20211012
  Receipt Date: 20230208
  Transmission Date: 20230418
  Serious: Yes (Hospitalization)
  Sender: FDA-Public Use
  Company Number: DE-ADRED-06527-01

PATIENT
  Age: 80 Year
  Sex: Female

DRUGS (18)
  1. IBUPROFEN [Suspect]
     Active Substance: IBUPROFEN
     Indication: Product used for unknown indication
     Dosage: 600 MG SINCE 1D CONVERTED AS NEEDED MEDICATION
     Route: 048
  2. ASPIRIN [Suspect]
     Active Substance: ASPIRIN
     Indication: Product used for unknown indication
     Dosage: 100 MG, PAUSED SINCE 30-MAR-2021
     Route: 048
  3. APIXABAN [Suspect]
     Active Substance: APIXABAN
     Indication: Product used for unknown indication
     Dosage: 2.5 MG, 1-0-1-0, TABLET
     Route: 048
  4. CARBIMAZOLE [Concomitant]
     Active Substance: CARBIMAZOLE
     Dosage: 5 MG, 0.5-0-0-0, TABLET
     Route: 048
  5. PROPRANOLOL [Concomitant]
     Active Substance: PROPRANOLOL HYDROCHLORIDE
     Dosage: 10 MG, 1-1-1-0, TABLET
     Route: 048
  6. DIMENHYDRINATE [Concomitant]
     Active Substance: DIMENHYDRINATE
     Dosage: 50 MG,IF NEEDED NOT MORE THAN 3 IN 24H, TABLETS
     Route: 048
  7. FUROSEMIDE [Concomitant]
     Active Substance: FUROSEMIDE
     Dosage: UNK, 40 MG, IF NEEDED, TABLET
     Route: 048
  8. CANDESARTAN [Concomitant]
     Active Substance: CANDESARTAN
     Dosage: UNK, 8 MG, 0.5-0-0-0, TABLET
     Route: 048
  9. NALOXONE HYDROCHLORIDE\TILIDINE HYDROCHLORIDE [Concomitant]
     Active Substance: NALOXONE HYDROCHLORIDE\TILIDINE HYDROCHLORIDE
     Dosage: UNK, 8|100 MG, AS NEEDED 1 IN 24H, TABLET
     Route: 048
  10. LOPERAMIDE [Concomitant]
     Active Substance: LOPERAMIDE
     Dosage: 2 MG, IF NEEDED, MAXIMUM 2 IN 24 H, TABLETS
     Route: 048
  11. PANTOPRAZOLE SODIUM [Concomitant]
     Active Substance: PANTOPRAZOLE SODIUM
     Dosage: UNK, 40 MG, 1-0-1-0, TABLETS
     Route: 048
  12. DIGITOXIN [Concomitant]
     Active Substance: DIGITOXIN
     Dosage: 0.05 MG, 1-0-0-0, TABLET
     Route: 048
  13. LACTULOSE [Concomitant]
     Active Substance: LACTULOSE
     Dosage: UNK, 3.335|5 G/ML, 10ML IF NEEDED IN 24H
     Route: 048
  14. LACTULOSE [Concomitant]
     Active Substance: LACTULOSE
     Dosage: 667 G/L, 10ML IF NEEDED IN 24H
     Route: 065
  15. IVY EXTRACT [Concomitant]
     Active Substance: IVY EXTRACT
     Dosage: UNK, 35|5 MG/ML, AS NEEDED, JUICE.
     Route: 048
  16. IVY EXTRACT [Concomitant]
     Active Substance: IVY EXTRACT
     Dosage: 7 MG/ML, ON DEMAND, JUICE
     Route: 048
  17. SPIRONOLACTONE [Concomitant]
     Active Substance: SPIRONOLACTONE
     Dosage: 50 MG, PAUSED SINCE 1DAY
     Route: 048
  18. ZOLPIDEM [Concomitant]
     Active Substance: ZOLPIDEM TARTRATE
     Dosage: 10 MG, PAUSED SINCE 30-MAR-2021
     Route: 048

REACTIONS (3)
  - Nausea [Unknown]
  - Fall [Unknown]
  - Medication error [Unknown]
